FAERS Safety Report 5377961-X (Version None)
Quarter: 2007Q2

REPORT INFORMATION
  Report Type: 
  Country: None (occurrence: None)
  Receive Date: 20070629
  Receipt Date: 20070617
  Transmission Date: 20071010
  Serious: No
  Sender: FDA-Public Use
  Company Number: US020307

PATIENT
  Age: 45 Year
  Sex: Female
  Weight: 90.7194 kg

DRUGS (2)
  1. FENTORA [Suspect]
     Indication: PAIN
     Dosage: 200 UG BUCCAL
     Route: 002
     Dates: start: 20070617
  2. DILAUDID [Concomitant]

REACTIONS (5)
  - ACCIDENTAL EXPOSURE [None]
  - CONTUSION [None]
  - GINGIVAL DISORDER [None]
  - GINGIVITIS [None]
  - INCORRECT ROUTE OF DRUG ADMINISTRATION [None]
